FAERS Safety Report 5577145-6 (Version None)
Quarter: 2007Q4

REPORT INFORMATION
  Report Type: 
  Country: None (occurrence: None)
  Receive Date: 20071228
  Receipt Date: 20071219
  Transmission Date: 20080405
  Serious: Yes (Other)
  Sender: FDA-Public Use
  Company Number: GB-PFIZER INC-2007047946

PATIENT
  Age: 74 Year
  Sex: Female

DRUGS (8)
  1. PREDNISOLONE [Suspect]
     Indication: POSTOPERATIVE CARE
  2. CHLORAMPHENICOL [Suspect]
     Indication: POSTOPERATIVE CARE
  3. LIDOCAINE [Suspect]
     Indication: ANAESTHESIA
  4. BUPIVACAINE [Suspect]
     Indication: ANAESTHESIA
  5. HYALURONIDASE [Suspect]
     Indication: ANAESTHESIA
  6. CEFUROXIME [Concomitant]
  7. POVIDONE IODINE [Concomitant]
     Route: 061
  8. PROXYMETACAINE [Concomitant]
     Route: 047

REACTIONS (3)
  - INTRAOCULAR PRESSURE INCREASED [None]
  - PAROPHTHALMIA [None]
  - VISUAL ACUITY REDUCED [None]
